FAERS Safety Report 6100615-9 (Version None)
Quarter: 2009Q1

REPORT INFORMATION
  Report Type: 
  Country: None (occurrence: None)
  Receive Date: 20090303
  Receipt Date: 20090218
  Transmission Date: 20090719
  Serious: Yes (Hospitalization)
  Sender: FDA-Public Use
  Company Number: US-NOVOPROD-284320

PATIENT
  Sex: Female

DRUGS (1)
  1. ACTIVELLA [Suspect]
     Indication: MENOPAUSAL SYMPTOMS
     Dosage: UNKNOWN
     Route: 048
     Dates: start: 20050101, end: 20080904

REACTIONS (2)
  - COLITIS ISCHAEMIC [None]
  - THROMBOSIS MESENTERIC VESSEL [None]
